FAERS Safety Report 12412035 (Version 1)
Quarter: 2016Q2

REPORT INFORMATION
  Report Type: Spontaneous
  Country: CO (occurrence: CO)
  Receive Date: 20160527
  Receipt Date: 20160527
  Transmission Date: 20160815
  Serious: Yes (Hospitalization, Other)
  Sender: FDA-Public Use
  Company Number: CO-PFIZER INC-2016274280

PATIENT
  Age: 45 Year
  Sex: Female
  Weight: 90 kg

DRUGS (2)
  1. PREDNISOLONE. [Suspect]
     Active Substance: PREDNISOLONE
     Dosage: UNK
     Dates: end: 2013
  2. METHOTREXATE SODIUM. [Suspect]
     Active Substance: METHOTREXATE SODIUM
     Indication: RHEUMATOID ARTHRITIS
     Dosage: UNK
     Route: 048
     Dates: end: 2013

REACTIONS (7)
  - Liver injury [Unknown]
  - Coma [Recovered/Resolved]
  - Hepatitis [Unknown]
  - Hypertension [Unknown]
  - Arthritis infective [Recovered/Resolved]
  - Cushing^s syndrome [Unknown]
  - Road traffic accident [Recovered/Resolved]

NARRATIVE: CASE EVENT DATE: 2006
